FAERS Safety Report 17784992 (Version 1)
Quarter: 2020Q2

REPORT INFORMATION
  Report Type: Spontaneous
  Country: FR (occurrence: FR)
  Receive Date: 20200514
  Receipt Date: 20200514
  Transmission Date: 20200714
  Serious: Yes (Other)
  Sender: FDA-Public Use
  Company Number: FR-PFIZER INC-2020191373

PATIENT
  Age: 76 Year
  Sex: Female

DRUGS (14)
  1. ETOPOSIDE. [Suspect]
     Active Substance: ETOPOSIDE
     Indication: SMALL CELL LUNG CANCER METASTATIC
     Dosage: UNK
     Dates: start: 201909, end: 202001
  2. OXYCONTIN [Concomitant]
     Active Substance: OXYCODONE HYDROCHLORIDE
     Dosage: 2 DF, 1X/DAY
     Route: 048
  3. PRINCI B [PYRIDOXINE HYDROCHLORIDE;THIAMINE MONONITRATE] [Concomitant]
     Active Substance: PYRIDOXINE\THIAMINE
     Dosage: 6 DF, 1X/DAY
     Route: 048
  4. PREGABALIN. [Concomitant]
     Active Substance: PREGABALIN
     Dosage: 150 MG, 1X/DAY
     Route: 048
  5. PREDNISOLONE. [Concomitant]
     Active Substance: PREDNISOLONE
     Dosage: 20 MG, 1X/DAY
  6. TRANSIPEG [MACROGOL] [Concomitant]
     Active Substance: POLYETHYLENE GLYCOLS
     Dosage: 1 DF, 1X/DAY
     Route: 048
  7. LAROXYL [Concomitant]
     Active Substance: AMITRIPTYLINE HYDROCHLORIDE
     Dosage: UNK
     Route: 048
  8. CARBOPLATIN. [Suspect]
     Active Substance: CARBOPLATIN
     Indication: SMALL CELL LUNG CANCER METASTATIC
     Dosage: UNK
     Dates: start: 201909, end: 202001
  9. OXYCODONE [Concomitant]
     Active Substance: OXYCODONE
     Dosage: 1 DF
     Route: 048
  10. INNOHEP [Concomitant]
     Active Substance: TINZAPARIN SODIUM
     Dosage: 1 DF, 1X/DAY
     Route: 058
  11. LANSOPRAZOLE. [Concomitant]
     Active Substance: LANSOPRAZOLE
     Dosage: 15 MG, 1X/DAY
     Route: 048
  12. FUNGIZONE [Concomitant]
     Active Substance: AMPHOTERICIN B
     Dosage: 3 DF, 1X/DAY
     Route: 048
  13. FOLINORAL [Concomitant]
     Active Substance: LEUCOVORIN CALCIUM
     Dosage: 6 DF, 1X/DAY
     Route: 048
  14. PROLIA [Concomitant]
     Active Substance: DENOSUMAB
     Dosage: 60 MG, MONTHLY
     Route: 065

REACTIONS (2)
  - Visual acuity reduced transiently [Not Recovered/Not Resolved]
  - Optic neuropathy [Not Recovered/Not Resolved]

NARRATIVE: CASE EVENT DATE: 201912
